FAERS Safety Report 9072276 (Version 1)
Quarter: 2013Q1

REPORT INFORMATION
  Report Type: Report from Study
  Country: US (occurrence: US)
  Receive Date: 20130129
  Receipt Date: 20130129
  Transmission Date: 20140127
  Serious: No
  Sender: FDA-Public Use
  Company Number: US-ABBOTT-12P-163-0922159-00

PATIENT
  Sex: Female
  Weight: 66.74 kg

DRUGS (5)
  1. HUMIRA 40 MG/0.8 ML PEN [Suspect]
     Indication: PSORIATIC ARTHROPATHY
     Dates: start: 2009, end: 20120301
  2. SYNTHROID [Concomitant]
     Indication: HYPOTHYROIDISM
     Dosage: DAILY
  3. PREMARIN [Concomitant]
     Indication: HORMONE REPLACEMENT THERAPY
     Dosage: DAILY
  4. NEXIUM [Concomitant]
     Indication: GASTROOESOPHAGEAL REFLUX DISEASE
     Dosage: DAILY
  5. MOBIC [Concomitant]
     Indication: INFLAMMATION
     Dosage: DAILY

REACTIONS (5)
  - Hypothyroidism [Unknown]
  - Influenza [Unknown]
  - Influenza [Unknown]
  - Influenza [Unknown]
  - Hepatic enzyme increased [Unknown]
